FAERS Safety Report 12730051 (Version 2)
Quarter: 2016Q3

REPORT INFORMATION
  Report Type: Report from Study
  Country: BR (occurrence: BR)
  Receive Date: 20160909
  Receipt Date: 20160921
  Transmission Date: 20161109
  Serious: Yes (Other)
  Sender: FDA-Public Use
  Company Number: BR-ABBVIE-16K-020-1720105-00

PATIENT
  Age: 46 Year
  Sex: Female
  Weight: 84 kg

DRUGS (1)
  1. HUMIRA [Suspect]
     Active Substance: ADALIMUMAB
     Indication: ANKYLOSING SPONDYLITIS
     Route: 058
     Dates: start: 20150110, end: 201606

REACTIONS (10)
  - Mass [Unknown]
  - Erythema [Not Recovered/Not Resolved]
  - Wound [Unknown]
  - Fibromyalgia [Not Recovered/Not Resolved]
  - Pruritus [Not Recovered/Not Resolved]
  - Scab [Not Recovered/Not Resolved]
  - Secretion discharge [Unknown]
  - Rash macular [Not Recovered/Not Resolved]
  - Inflammation [Not Recovered/Not Resolved]
  - Skin exfoliation [Unknown]

NARRATIVE: CASE EVENT DATE: 201606
